FAERS Safety Report 12263541 (Version 1)
Quarter: 2016Q2

REPORT INFORMATION
  Report Type: Spontaneous
  Country: US (occurrence: US)
  Receive Date: 20160413
  Receipt Date: 20160413
  Transmission Date: 20160815
  Serious: No
  Sender: FDA-Public Use
  Company Number: US-JNJFOC-20160321871

PATIENT
  Age: 49 Year
  Sex: Female
  Weight: 81.65 kg

DRUGS (4)
  1. CHILDRENS TYLENOL [Suspect]
     Active Substance: ACETAMINOPHEN
     Indication: MUSCULOSKELETAL PAIN
     Dosage: 3 TEASPOONS, 1-2 TIMES PER DAY FOR PAST 2 YEARS
     Route: 048
  2. CHILDRENS TYLENOL [Suspect]
     Active Substance: ACETAMINOPHEN
     Indication: MUSCULOSKELETAL PAIN
     Dosage: 6 TEASPOONS, 4 TIMES DOSING CUP OR OTHER CHILD PRODUCT CUP
     Route: 048
     Dates: start: 20160316, end: 20160321
  3. CHILDRENS TYLENOL [Suspect]
     Active Substance: ACETAMINOPHEN
     Indication: PAIN
     Dosage: 3 TEASPOONS, 1-2 TIMES PER DAY FOR PAST 2 YEARS
     Route: 048
  4. CHILDRENS TYLENOL [Suspect]
     Active Substance: ACETAMINOPHEN
     Indication: PAIN
     Dosage: 6 TEASPOONS, 4 TIMES DOSING CUP OR OTHER CHILD PRODUCT CUP
     Route: 048
     Dates: start: 20160316, end: 20160321

REACTIONS (2)
  - Drug administered to patient of inappropriate age [Unknown]
  - Off label use [Unknown]
